FAERS Safety Report 4418188-5 (Version None)
Quarter: 2004Q3

REPORT INFORMATION
  Report Type: 
  Country: None (occurrence: None)
  Receive Date: 20040809
  Receipt Date: 20031223
  Transmission Date: 20050211
  Serious: No
  Sender: FDA-Public Use
  Company Number: US-GLAXOSMITHKLINE-A0444117A

PATIENT
  Age: 40 Year
  Sex: Male

DRUGS (4)
  1. PAXIL CR [Suspect]
     Indication: ILL-DEFINED DISORDER
     Dosage: 50MG TWICE PER DAY
     Route: 048
  2. DEPAKOTE [Concomitant]
  3. ABILIFY [Concomitant]
  4. WELLBUTRIN SR [Concomitant]

REACTIONS (2)
  - MICTURITION URGENCY [None]
  - POLLAKIURIA [None]
